FAERS Safety Report 6186225-6 (Version None)
Quarter: 2009Q2

REPORT INFORMATION
  Report Type: 
  Country: None (occurrence: None)
  Receive Date: 20090511
  Receipt Date: 20090430
  Transmission Date: 20091009
  Serious: Yes (Other)
  Sender: FDA-Public Use
  Company Number: PHEH2007US13967

PATIENT
  Sex: Male
  Weight: 94.785 kg

DRUGS (20)
  1. ZOMETA [Suspect]
     Indication: PROSTATE CANCER
     Dosage: 4 MG, UNK
     Route: 042
     Dates: start: 20020101, end: 20061001
  2. ZOMETA [Suspect]
     Indication: METASTASES TO BONE
  3. AREDIA [Suspect]
  4. ATENOLOL [Concomitant]
  5. ASPIRIN [Concomitant]
  6. ZOCOR [Concomitant]
  7. ACTONEL [Concomitant]
  8. LIPITOR [Concomitant]
  9. BENICAR [Concomitant]
  10. NEXIUM [Concomitant]
  11. LUPRON [Concomitant]
  12. CASODEX [Concomitant]
  13. FOLIC ACID [Concomitant]
  14. MOBIC [Concomitant]
  15. VIOXX [Concomitant]
  16. TRETINOIN [Concomitant]
  17. RADIATION THERAPY [Concomitant]
  18. ALTACE [Concomitant]
  19. ADVIL [Concomitant]
  20. ANTINEOPLASTIC AGENTS [Concomitant]

REACTIONS (32)
  - ANHEDONIA [None]
  - ANXIETY [None]
  - BONE DISORDER [None]
  - DEBRIDEMENT [None]
  - DEFORMITY [None]
  - DYSPHAGIA [None]
  - EMOTIONAL DISTRESS [None]
  - ENDODONTIC PROCEDURE [None]
  - FISTULA [None]
  - GASTROOESOPHAGEAL REFLUX DISEASE [None]
  - GINGIVAL RECESSION [None]
  - GINGIVAL SWELLING [None]
  - INJURY [None]
  - LOOSE TOOTH [None]
  - METASTATIC NEOPLASM [None]
  - ORAL SURGERY [None]
  - OROPHARYNGEAL BLISTERING [None]
  - OSTEOLYSIS [None]
  - OSTEOMYELITIS [None]
  - OSTEONECROSIS [None]
  - PAIN [None]
  - PARAESTHESIA [None]
  - PERIODONTITIS [None]
  - PHYSICAL DISABILITY [None]
  - POLLAKIURIA [None]
  - POST PROCEDURAL FISTULA [None]
  - PRIMARY SEQUESTRUM [None]
  - RESORPTION BONE INCREASED [None]
  - SPINAL OSTEOARTHRITIS [None]
  - SWELLING [None]
  - TOOTH DISORDER [None]
  - TOOTH EXTRACTION [None]
